FAERS Safety Report 6733847-7 (Version None)
Quarter: 2010Q2

REPORT INFORMATION
  Report Type: 
  Country: None (occurrence: None)
  Receive Date: 20100520
  Receipt Date: 20100518
  Transmission Date: 20101027
  Serious: Yes (Life-Threatening)
  Sender: FDA-Public Use
  Company Number: MX-ROCHE-642010

PATIENT
  Sex: Female
  Weight: 70 kg

DRUGS (13)
  1. TOCILIZUMAB [Suspect]
     Indication: RHEUMATOID ARTHRITIS
     Dosage: DOSAGE FORM-VIALS, THERAPY PERMANANTLY DISCONTINUED
     Route: 042
     Dates: start: 20050621, end: 20090701
  2. METHOTREXATE [Concomitant]
     Dosage: FREQUENCY REPORTED AS: WEEKLY
     Route: 048
     Dates: start: 20050720
  3. METHOTREXATE [Concomitant]
     Dosage: INCREASED DOSE OF METHOTREXATE.
     Route: 048
  4. FOLIC ACID [Concomitant]
     Dates: start: 20050720
  5. BUTAZOLIDINE [Concomitant]
     Dates: start: 20050720, end: 20090727
  6. ACETAMINOPHEN [Concomitant]
     Dates: start: 20050804, end: 20090727
  7. CARBAMAZEPINE [Concomitant]
     Dates: start: 20050915
  8. HYPROMELLOSE [Concomitant]
     Dates: start: 20070102
  9. OMEPRAZOLE [Concomitant]
     Dates: start: 20050818
  10. TRAMACET [Concomitant]
     Dates: start: 20090727
  11. DICLOFENAC [Concomitant]
     Dates: start: 20090727, end: 20100301
  12. MISOPROSTOL [Concomitant]
     Dates: start: 20090727, end: 20100301
  13. FENILBUTAZONA [Concomitant]
     Dosage: DRUG: 600 MG DRUG: FENILBUTAZON
     Dates: start: 20100301

REACTIONS (1)
  - BREAST CANCER STAGE II [None]
